FAERS Safety Report 8321901-8 (Version None)
Quarter: 2012Q2

REPORT INFORMATION
  Report Type: 
  Country: None (occurrence: None)
  Receive Date: 20120430
  Receipt Date: 20120425
  Transmission Date: 20120825
  Serious: Yes (Death, Hospitalization)
  Sender: FDA-Public Use
  Company Number: DE-AMGEN-DEUSP2012018638

PATIENT
  Age: 88 Year
  Sex: Female

DRUGS (3)
  1. METHOTREXATE [Concomitant]
  2. NEULASTA [Suspect]
     Indication: LEUKOPENIA
     Dosage: 6 MG, UNK
     Route: 058
     Dates: start: 20100712, end: 20100717
  3. NEUPOGEN [Suspect]
     Indication: LEUKOPENIA
     Dosage: UNK
     Route: 058
     Dates: start: 20100710

REACTIONS (3)
  - DEATH [None]
  - LEUKOCYTOSIS [None]
  - OVERDOSE [None]
